FAERS Safety Report 7109067-3 (Version None)
Quarter: 2010Q4

REPORT INFORMATION
  Report Type: 
  Country: None (occurrence: None)
  Receive Date: 20101117
  Receipt Date: 20101105
  Transmission Date: 20110411
  Serious: Yes (Other)
  Sender: FDA-Public Use
  Company Number: PHHY2010US53480

PATIENT
  Sex: Male

DRUGS (2)
  1. EXJADE [Suspect]
     Dosage: QD
     Route: 048
  2. SUCRALFATE [Concomitant]
     Indication: GASTRIC DISORDER
     Dosage: FOUR TIMES DAILY
     Route: 048
     Dates: start: 20100801

REACTIONS (1)
  - ULCER [None]
